FAERS Safety Report 18254695 (Version 4)
Quarter: 2020Q4

REPORT INFORMATION
  Report Type: Spontaneous
  Country: US (occurrence: US)
  Receive Date: 20200911
  Receipt Date: 20201009
  Transmission Date: 20210113
  Serious: No
  Sender: FDA-Public Use
  Company Number: US-GLAXOSMITHKLINE-US2020AMR181752

PATIENT
  Sex: Female

DRUGS (3)
  1. ZEJULA [Suspect]
     Active Substance: NIRAPARIB
     Indication: OVARIAN CANCER
     Dosage: 200 MG, QD
     Route: 048
     Dates: start: 20200901
  2. ZEJULA [Suspect]
     Active Substance: NIRAPARIB
     Dosage: 200 MG, QD
  3. ZEJULA [Suspect]
     Active Substance: NIRAPARIB
     Dosage: 200 MG, QD
     Route: 048

REACTIONS (10)
  - Insomnia [Unknown]
  - Blood pressure increased [Recovering/Resolving]
  - Red blood cell count decreased [Unknown]
  - Decreased appetite [Unknown]
  - Nausea [Unknown]
  - Illness [Unknown]
  - Platelet count decreased [Unknown]
  - Weight decreased [Unknown]
  - White blood cell count decreased [Unknown]
  - Urinary tract infection [Unknown]
